FAERS Safety Report 24774321 (Version 1)
Quarter: 2024Q4

REPORT INFORMATION
  Report Type: Spontaneous
  Country: US (occurrence: US)
  Receive Date: 20241225
  Receipt Date: 20241225
  Transmission Date: 20250114
  Serious: No
  Sender: ELI LILLY AND COMPANY
  Company Number: US-ELI_LILLY_AND_COMPANY-US202412011568

PATIENT
  Age: 39 Year
  Sex: Female

DRUGS (1)
  1. TALTZ [Suspect]
     Active Substance: IXEKIZUMAB
     Indication: Product used for unknown indication
     Dosage: 160 MG, SINGLE
     Route: 065
     Dates: start: 20241116, end: 20241116

REACTIONS (21)
  - Sleep disorder [Unknown]
  - Presyncope [Unknown]
  - Dizziness [Unknown]
  - Lip swelling [Unknown]
  - Mood swings [Unknown]
  - Emotional disorder [Unknown]
  - Crying [Unknown]
  - Anger [Unknown]
  - Throat irritation [Unknown]
  - Psoriasis [Unknown]
  - Feeling abnormal [Unknown]
  - Gastrointestinal disorder [Unknown]
  - Frequent bowel movements [Unknown]
  - Stress [Unknown]
  - Blood pressure increased [Unknown]
  - Injection site vesicles [Unknown]
  - Injection site rash [Unknown]
  - Injection site pruritus [Unknown]
  - Injection site swelling [Unknown]
  - Injection site bruising [Unknown]
  - Injection site warmth [Unknown]

NARRATIVE: CASE EVENT DATE: 20241206
